FAERS Safety Report 5828667-1 (Version None)
Quarter: 2008Q3

REPORT INFORMATION
  Report Type: 
  Country: None (occurrence: None)
  Receive Date: 20080730
  Receipt Date: 20080730
  Transmission Date: 20090109
  Serious: Yes (Other)
  Sender: FDA-Public Use
  Company Number: None

PATIENT
  Age: 48 Year
  Sex: Male
  Weight: 97.5234 kg

DRUGS (1)
  1. ZICAM [Suspect]
     Indication: NASOPHARYNGITIS
     Dosage: ONE SWAB EVERY 4HRS NASAL
     Route: 045
     Dates: start: 20080315, end: 20080330

REACTIONS (2)
  - AGEUSIA [None]
  - ANOSMIA [None]
